FAERS Safety Report 8503372-1 (Version None)
Quarter: 2012Q3

REPORT INFORMATION
  Report Type: 
  Country: None (occurrence: None)
  Receive Date: 20120711
  Receipt Date: 20120706
  Transmission Date: 20120928
  Serious: No
  Sender: FDA-Public Use
  Company Number: US-PFIZER INC-2012096136

PATIENT
  Sex: Male
  Weight: 90 kg

DRUGS (3)
  1. NORVASC [Suspect]
     Indication: DIABETES MELLITUS
     Dosage: 10 MG, DAILY
     Dates: start: 20110101
  2. NORVASC [Suspect]
  3. GLIPIZIDE [Concomitant]
     Indication: DIABETES MELLITUS
     Dosage: 5 MG, DAILY

REACTIONS (2)
  - BLOOD GLUCOSE DECREASED [None]
  - INSOMNIA [None]
